FAERS Safety Report 10759433 (Version 1)
Quarter: 2015Q1

REPORT INFORMATION
  Report Type: Spontaneous
  Country: US (occurrence: US)
  Receive Date: 20150203
  Receipt Date: 20150203
  Transmission Date: 20150721
  Serious: No
  Sender: FDA-Public Use
  Company Number: US-GLAXOSMITHKLINE-US2014GSK049179

PATIENT
  Age: 37 Year
  Sex: Male
  Weight: 90.3 kg

DRUGS (7)
  1. CYCLOBENZAPRINE [Concomitant]
     Active Substance: CYCLOBENZAPRINE
  2. OXYCODONE WITH ACETAMINOPHEN [Concomitant]
  3. AMLODIPINE [Concomitant]
     Active Substance: AMLODIPINE BESYLATE
  4. VOTRIENT [Suspect]
     Active Substance: PAZOPANIB HYDROCHLORIDE
     Indication: RENAL CANCER
     Dosage: 800 MG, QD
     Route: 048
     Dates: start: 201409
  5. ADVIL [Concomitant]
     Active Substance: IBUPROFEN
  6. PREDNISONE. [Concomitant]
     Active Substance: PREDNISONE
  7. ZOFRAN [Concomitant]
     Active Substance: ONDANSETRON HYDROCHLORIDE

REACTIONS (2)
  - Weight decreased [Unknown]
  - Nausea [Unknown]

NARRATIVE: CASE EVENT DATE: 201409
